FAERS Safety Report 6597637-0 (Version None)
Quarter: 2010Q1

REPORT INFORMATION
  Report Type: 
  Country: None (occurrence: None)
  Receive Date: 20100219
  Receipt Date: 20100219
  Transmission Date: 20100710
  Serious: No
  Sender: FDA-Public Use
  Company Number: None

PATIENT
  Age: 61 Year
  Sex: Male
  Weight: 79.3795 kg

DRUGS (1)
  1. LUNESTA [Suspect]

REACTIONS (2)
  - HALLUCINATION [None]
  - VOMITING PROJECTILE [None]
